FAERS Safety Report 10629853 (Version 1)
Quarter: 2014Q4

REPORT INFORMATION
  Report Type: Spontaneous
  Country: US (occurrence: US)
  Receive Date: 20141205
  Receipt Date: 20141205
  Transmission Date: 20150529
  Serious: No
  Sender: FDA-Public Use
  Company Number: US-BRISTOL-MYERS SQUIBB COMPANY-21400940

PATIENT
  Age: 53 Year
  Sex: Male
  Weight: 81.63 kg

DRUGS (4)
  1. GLIMEPIRIDE. [Concomitant]
     Active Substance: GLIMEPIRIDE
  2. GLUCOPHAGE [Concomitant]
     Active Substance: METFORMIN HYDROCHLORIDE
  3. BYDUREON [Suspect]
     Active Substance: EXENATIDE
     Indication: TYPE 2 DIABETES MELLITUS
  4. BYETTA [Suspect]
     Active Substance: EXENATIDE

REACTIONS (5)
  - Injection site reaction [Unknown]
  - Nausea [Unknown]
  - Vomiting [Unknown]
  - Product quality issue [Unknown]
  - Injection site pain [Unknown]
